FAERS Safety Report 12645841 (Version 2)
Quarter: 2016Q3

REPORT INFORMATION
  Report Type: Report from Study
  Country: BR (occurrence: BR)
  Receive Date: 20160811
  Receipt Date: 20160816
  Transmission Date: 20161109
  Serious: Yes (Death, Hospitalization)
  Sender: FDA-Public Use
  Company Number: PHHY2016BR110041

PATIENT
  Age: 72 Year
  Sex: Male

DRUGS (1)
  1. EXELON PATCH [Suspect]
     Active Substance: RIVASTIGMINE
     Indication: DEMENTIA ALZHEIMER^S TYPE
     Dosage: 1 DF, QD
     Route: 062
     Dates: start: 201507, end: 201509

REACTIONS (4)
  - Malaise [Fatal]
  - Diplegia [Fatal]
  - Metastatic neoplasm [Fatal]
  - Metastases to spine [Fatal]

NARRATIVE: CASE EVENT DATE: 20150912
